FAERS Safety Report 21293317 (Version 1)
Quarter: 2022Q3

REPORT INFORMATION
  Report Type: Spontaneous
  Country: FR (occurrence: FR)
  Receive Date: 20220905
  Receipt Date: 20220905
  Transmission Date: 20221027
  Serious: Yes (Hospitalization)
  Sender: FDA-Public Use
  Company Number: FR-AFSSAPS-PA20223837

PATIENT
  Age: 37 Year
  Sex: Male
  Weight: 120 kg

DRUGS (17)
  1. NICARDIPINE [Suspect]
     Active Substance: NICARDIPINE
     Indication: Hypertension
     Dosage: UNK
     Route: 048
     Dates: start: 20220629, end: 20220703
  2. NICARDIPINE [Suspect]
     Active Substance: NICARDIPINE
     Dosage: UNK
     Route: 048
     Dates: start: 20220705, end: 20220705
  3. NICARDIPINE [Suspect]
     Active Substance: NICARDIPINE
     Dosage: UNK
     Route: 048
     Dates: start: 20220707, end: 20220709
  4. NICARDIPINE [Suspect]
     Active Substance: NICARDIPINE
     Dosage: 20 MILLIGRAM (1 TO 4 TABLETS OF 20 MG PER DAY IF SBP} 160 MMHG)
     Route: 048
     Dates: start: 20220711
  5. ACETAMINOPHEN [Suspect]
     Active Substance: ACETAMINOPHEN
     Indication: Pyrexia
     Dosage: IF FEVER
     Route: 048
     Dates: start: 20220628
  6. RAMIPRIL [Suspect]
     Active Substance: RAMIPRIL
     Indication: Product used for unknown indication
     Dosage: UNK
     Route: 048
     Dates: start: 20220701, end: 20220706
  7. RAMIPRIL [Suspect]
     Active Substance: RAMIPRIL
     Dosage: 5 MILLIGRAM, ONCE A DAY
     Route: 048
     Dates: start: 20220710, end: 20220808
  8. RAMIPRIL [Suspect]
     Active Substance: RAMIPRIL
     Dosage: 10 MILLIGRAM, ONCE A DAY
     Route: 048
     Dates: start: 20220809
  9. AMLODIPINE BESYLATE [Suspect]
     Active Substance: AMLODIPINE BESYLATE
     Indication: Hypertension
     Dosage: UNK
     Route: 048
     Dates: start: 20220706, end: 20220710
  10. AMLODIPINE BESYLATE [Suspect]
     Active Substance: AMLODIPINE BESYLATE
     Dosage: 5 MILLIGRAM, ONCE A DAY
     Route: 048
     Dates: start: 20220729, end: 20220808
  11. AMLODIPINE BESYLATE [Suspect]
     Active Substance: AMLODIPINE BESYLATE
     Dosage: 10 MILLIGRAM, ONCE A DAY
     Route: 048
     Dates: start: 20220809
  12. LOVENOX [Suspect]
     Active Substance: ENOXAPARIN SODIUM
     Indication: Product used for unknown indication
     Dosage: UNK
     Route: 058
     Dates: start: 20220630, end: 20220703
  13. LOVENOX [Suspect]
     Active Substance: ENOXAPARIN SODIUM
     Dosage: UNK
     Route: 058
     Dates: start: 20220705, end: 20220706
  14. LOVENOX [Suspect]
     Active Substance: ENOXAPARIN SODIUM
     Dosage: UNK
     Route: 058
     Dates: start: 20220708, end: 20220709
  15. LOVENOX [Suspect]
     Active Substance: ENOXAPARIN SODIUM
     Dosage: UNK
     Route: 058
     Dates: start: 20220712, end: 20220712
  16. LOVENOX [Suspect]
     Active Substance: ENOXAPARIN SODIUM
     Dosage: 6000 INTERNATIONAL UNIT, ONCE A DAY
     Route: 058
     Dates: start: 20220716, end: 20220803
  17. LOVENOX [Suspect]
     Active Substance: ENOXAPARIN SODIUM
     Dosage: 4000 INTERNATIONAL UNIT, ONCE A DAY (4000 IU IN THE EVENING)
     Route: 058
     Dates: start: 20220805

REACTIONS (1)
  - Eosinophilia [Not Recovered/Not Resolved]

NARRATIVE: CASE EVENT DATE: 20220708
